FAERS Safety Report 6880014-2 (Version None)
Quarter: 2010Q3

REPORT INFORMATION
  Report Type: 
  Country: None (occurrence: None)
  Receive Date: 20100728
  Receipt Date: 20100721
  Transmission Date: 20110219
  Serious: Yes (Life-Threatening, Hospitalization, Other)
  Sender: FDA-Public Use
  Company Number: PHHY2010US48469

PATIENT
  Sex: Male

DRUGS (1)
  1. VALTURNA [Suspect]

REACTIONS (2)
  - BLOOD CREATININE INCREASED [None]
  - PROSTATECTOMY [None]
